FAERS Safety Report 4966614-5 (Version None)
Quarter: 2006Q2

REPORT INFORMATION
  Report Type: 
  Country: None (occurrence: None)
  Receive Date: 20060407
  Receipt Date: 20060320
  Transmission Date: 20061013
  Serious: Yes (Disabling)
  Sender: FDA-Public Use
  Company Number: AU-BOEHRINGER INGELHEIM PHARMACEUTICALS, INC.-2006-BP-03683AU

PATIENT
  Sex: Female

DRUGS (1)
  1. SPIRIVA [Suspect]
     Route: 055
     Dates: start: 20030101

REACTIONS (4)
  - GLAUCOMA [None]
  - OCULAR RETROBULBAR HAEMORRHAGE [None]
  - POSTNASAL DRIP [None]
  - RETINAL VEIN OCCLUSION [None]
